FAERS Safety Report 5316496-7 (Version None)
Quarter: 2007Q2

REPORT INFORMATION
  Report Type: 
  Country: None (occurrence: None)
  Receive Date: 20070504
  Receipt Date: 20070424
  Transmission Date: 20071010
  Serious: Yes (Hospitalization, Other)
  Sender: FDA-Public Use
  Company Number: US-PFIZER INC-2007017319

PATIENT
  Sex: Female

DRUGS (3)
  1. GEODON [Suspect]
     Indication: PSYCHOTIC DISORDER
     Route: 048
  2. ZOLOFT [Suspect]
     Route: 048
  3. RISPERDAL [Suspect]
     Indication: ASPERGER'S DISORDER
     Route: 048
     Dates: start: 20051202, end: 20060901

REACTIONS (15)
  - ACTIVITIES OF DAILY LIVING IMPAIRED [None]
  - ANXIETY [None]
  - APATHY [None]
  - ASPERGER'S DISORDER [None]
  - AUTISM SPECTRUM DISORDER [None]
  - DEPENDENT PERSONALITY DISORDER [None]
  - EXTRAPYRAMIDAL DISORDER [None]
  - ILL-DEFINED DISORDER [None]
  - IMPULSIVE BEHAVIOUR [None]
  - IRRITABILITY [None]
  - MAJOR DEPRESSION [None]
  - MENTAL IMPAIRMENT [None]
  - SCHIZOTYPAL PERSONALITY DISORDER [None]
  - TARDIVE DYSKINESIA [None]
  - WEIGHT INCREASED [None]
